FAERS Safety Report 6256376-6 (Version None)
Quarter: 2009Q3

REPORT INFORMATION
  Report Type: 
  Country: None (occurrence: None)
  Receive Date: 20090706
  Receipt Date: 20090626
  Transmission Date: 20100115
  Serious: Yes (Hospitalization)
  Sender: FDA-Public Use
  Company Number: GB-AMGEN-US351039

PATIENT
  Sex: Female

DRUGS (3)
  1. ENBREL [Suspect]
     Indication: ANKYLOSING SPONDYLITIS
     Dosage: 50 MG EVERY 1 TOT
     Route: 065
     Dates: start: 20090406, end: 20090406
  2. ENBREL [Suspect]
     Dosage: 50 MG EVERY 1 TOT
     Dates: start: 20090414, end: 20090414
  3. ENBREL [Suspect]
     Dosage: 50 MG EVERY 1 TOT
     Dates: start: 20090420, end: 20090420

REACTIONS (5)
  - HYPERHIDROSIS [None]
  - LYMPHADENOPATHY [None]
  - LYMPHOMA [None]
  - PYREXIA [None]
  - TUBERCULOSIS [None]
